FAERS Safety Report 5249864-2 (Version None)
Quarter: 2007Q1

REPORT INFORMATION
  Report Type: 
  Country: None (occurrence: None)
  Receive Date: 20070228
  Receipt Date: 20070221
  Transmission Date: 20070707
  Serious: Yes (Hospitalization)
  Sender: FDA-Public Use
  Company Number: US-AVENTIS-200711172US

PATIENT
  Sex: Female

DRUGS (3)
  1. LANTUS [Suspect]
     Indication: DIABETES MELLITUS NON-INSULIN-DEPENDENT
     Dosage: DOSE: UNK
     Route: 051
  2. NOVOLOG [Suspect]
     Dosage: DOSE: DAYTIME
  3. GLUCOPHAGE [Concomitant]
     Dosage: DOSE: UNK

REACTIONS (5)
  - ASTHENIA [None]
  - DEHYDRATION [None]
  - DRUG DISPENSING ERROR [None]
  - HEART RATE INCREASED [None]
  - HYPERGLYCAEMIA [None]
